FAERS Safety Report 9927397 (Version 1)
Quarter: 2014Q1

REPORT INFORMATION
  Report Type: Report from Study
  Country: BR (occurrence: BR)
  Receive Date: 20140226
  Receipt Date: 20140226
  Transmission Date: 20141002
  Serious: Yes (Hospitalization, Other)
  Sender: FDA-Public Use
  Company Number: PHHY2014BR021969

PATIENT
  Sex: Male
  Weight: 74 kg

DRUGS (4)
  1. DIOVAN HCT [Suspect]
     Indication: HYPERTENSION
     Dosage: 1 DF (160/12.5MG) QD (IN THE MORNING)
     Route: 048
     Dates: end: 201308
  2. DIOVAN HCT [Suspect]
     Dosage: 1 DF (160/12.5MG), QD (IN THE MORNING)
     Route: 048
     Dates: start: 201308
  3. ATENOLOL [Suspect]
     Indication: HYPERTENSION
     Dosage: 1 DF (25MG) QD (IN THE MORNING)
     Route: 048
     Dates: end: 201308
  4. ATENOLOL [Suspect]
     Dosage: 1 DF (25MG) QD (IN THE MORNING)
     Route: 048
     Dates: start: 201308

REACTIONS (3)
  - Infarction [Recovering/Resolving]
  - Venous occlusion [Recovering/Resolving]
  - Blood pressure decreased [Recovering/Resolving]
